FAERS Safety Report 7648899-X (Version None)
Quarter: 2011Q3

REPORT INFORMATION
  Report Type: 
  Country: None (occurrence: None)
  Receive Date: 20110801
  Receipt Date: 20110728
  Transmission Date: 20111222
  Serious: Yes (Death)
  Sender: FDA-Public Use
  Company Number: GB-MERCK-1107USA04057

PATIENT
  Age: 82 Year
  Sex: Male

DRUGS (3)
  1. DECADRON [Suspect]
     Route: 048
  2. JEVTANA KIT [Suspect]
     Indication: PROSTATE CANCER
     Dosage: 20MG/M2 PER CYCLE
     Route: 042
     Dates: start: 20110623, end: 20110623
  3. FILGRASTIM [Concomitant]
     Indication: PROSTATE CANCER
     Route: 065
     Dates: start: 20110624

REACTIONS (1)
  - GASTRIC HAEMORRHAGE [None]
